FAERS Safety Report 8847126 (Version 1)
Quarter: 2012Q4

REPORT INFORMATION
  Report Type: Spontaneous
  Country: JP (occurrence: None)
  Receive Date: 20121016
  Receipt Date: 20121016
  Transmission Date: 20130627
  Serious: Yes (Other)
  Sender: FDA-Public Use
  Company Number: US-2012-10936

PATIENT
  Age: 71 Year
  Sex: Female
  Weight: 50 kg

DRUGS (4)
  1. CILOSTAZOL [Suspect]
  2. WARFARIN [Suspect]
  3. ASPIRIN (ASPIRIN) [Suspect]
  4. BERAPROST [Suspect]

REACTIONS (8)
  - Nerve injury [None]
  - Gangrene [None]
  - Prothrombin time prolonged [None]
  - Postoperative fever [None]
  - Vocal cord paralysis [None]
  - Post procedural complication [None]
  - Lobar pneumonia [None]
  - Pneumonia aspiration [None]
